FAERS Safety Report 6149062-4 (Version None)
Quarter: 2009Q2

REPORT INFORMATION
  Report Type: 
  Country: None (occurrence: None)
  Receive Date: 20090409
  Receipt Date: 20090331
  Transmission Date: 20091009
  Serious: Yes (Other)
  Sender: FDA-Public Use
  Company Number: US-PFIZER INC-2006097950

PATIENT
  Sex: Female

DRUGS (5)
  1. PROVERA [Suspect]
     Indication: MENOPAUSE
     Dosage: UNK
     Route: 048
     Dates: start: 19890101, end: 19960101
  2. PREMARIN [Suspect]
     Indication: MENOPAUSE
     Dosage: UNK
     Route: 065
     Dates: start: 19890101, end: 19920201
  3. ESTRACE [Suspect]
     Indication: MENOPAUSE
     Dosage: UNK
     Route: 065
     Dates: start: 19940101, end: 19970101
  4. ESTRADIOL [Suspect]
     Indication: MENOPAUSE
     Dosage: UNK
     Route: 065
     Dates: start: 19970101, end: 19990101
  5. MEDROXYPROGESTERONE ACETATE [Suspect]
     Indication: MENOPAUSE
     Dosage: UNK
     Route: 065
     Dates: start: 19970101, end: 19990101

REACTIONS (2)
  - BREAST CANCER [None]
  - OESTROGEN RECEPTOR ASSAY POSITIVE [None]
